FAERS Safety Report 22608628 (Version 1)
Quarter: 2023Q2

REPORT INFORMATION
  Report Type: Report from Study
  Country: CA (occurrence: CA)
  Receive Date: 20230616
  Receipt Date: 20230616
  Transmission Date: 20230722
  Serious: Yes (Other)
  Sender: FDA-Public Use
  Company Number: CA-CELLTRION INC.-2023CA012317

PATIENT

DRUGS (5)
  1. TRUXIMA [Suspect]
     Active Substance: RITUXIMAB-ABBS
     Indication: Neuropathy peripheral
     Dosage: 1000 MG
     Route: 042
  2. PERINDOPRIL ARGININE [Concomitant]
     Active Substance: PERINDOPRIL ARGININE
     Indication: Blood pressure measurement
     Dosage: 6 MG, ONCE DAILY
  3. HEPARIN [Concomitant]
     Active Substance: HEPARIN SODIUM
     Indication: Anticoagulant therapy
     Dosage: 500 L.L. TWIVE DAILY
  4. ETHINYL ESTRADIOL\NORGESTIMATE [Concomitant]
     Active Substance: ETHINYL ESTRADIOL\NORGESTIMATE
     Dosage: (BIRTH CONTROL)
  5. WARFARIN [Concomitant]
     Active Substance: WARFARIN
     Dosage: 7 MG (FLUCTUATING DOSES)

REACTIONS (2)
  - Neuropathy peripheral [Unknown]
  - Off label use [Unknown]
